FAERS Safety Report 8803455 (Version 1)
Quarter: 2012Q4

REPORT INFORMATION
  Report Type: 
  Country: GB (occurrence: GB)
  Receive Date: 20120924
  Receipt Date: 20120924
  Transmission Date: 20130627
  Serious: Yes (Other)
  Sender: FDA-Public Use
  Company Number: GB-009507513-1209GBR007509

PATIENT
  Age: 79 Year
  Sex: Female
  Weight: 65 kg

DRUGS (3)
  1. COZAAR [Suspect]
     Dosage: 100 mg, qd
     Route: 048
     Dates: start: 20120814
  2. BENDROFLUMETHIAZIDE [Concomitant]
     Route: 048
  3. BISOPROLOL [Concomitant]
     Route: 048

REACTIONS (3)
  - Visual impairment [Not Recovered/Not Resolved]
  - Dizziness [Not Recovered/Not Resolved]
  - Myalgia [Not Recovered/Not Resolved]
